FAERS Safety Report 17165944 (Version 8)
Quarter: 2020Q3

REPORT INFORMATION
  Report Type: Spontaneous
  Country: PL (occurrence: PL)
  Receive Date: 20191217
  Receipt Date: 20200901
  Transmission Date: 20201102
  Serious: Yes (Death, Life-Threatening, Hospitalization, Other)
  Sender: FDA-Public Use
  Company Number: PL-MYLANLABS-2019M1125341

PATIENT
  Age: 46 Year
  Sex: Female

DRUGS (51)
  1. PANTOPRAZOLE [Interacting]
     Active Substance: PANTOPRAZOLE
     Dosage: 1 DOSAGE FORM, QD
     Route: 048
  2. PANTOPRAZOLE [Suspect]
     Active Substance: PANTOPRAZOLE
     Indication: REFLUX GASTRITIS
  3. NIFUROKSAZYD [Interacting]
     Active Substance: NIFUROXAZIDE
     Indication: URINARY TRACT INFECTION
  4. LEVOFLOXACIN. [Interacting]
     Active Substance: LEVOFLOXACIN
     Indication: ANTIBIOTIC THERAPY
  5. ARIPIPRAZOLE. [Interacting]
     Active Substance: ARIPIPRAZOLE
     Dosage: UNK
     Route: 048
  6. NIFUROXAZIDE [Interacting]
     Active Substance: NIFUROXAZIDE
     Indication: URINARY TRACT INFECTION
     Dosage: UNK
  7. PANTOPRAZOLE [Suspect]
     Active Substance: PANTOPRAZOLE
     Indication: GASTROOESOPHAGEAL REFLUX DISEASE
     Dosage: UNK
     Route: 065
  8. LEVOFLOXACIN. [Interacting]
     Active Substance: LEVOFLOXACIN
     Indication: BACTERIAL INFECTION
     Dosage: UNK
     Route: 065
  9. LEVOFLOXACIN. [Interacting]
     Active Substance: LEVOFLOXACIN
     Indication: URINARY TRACT INFECTION
  10. CIPROFLOXACIN. [Interacting]
     Active Substance: CIPROFLOXACIN
     Indication: BACTERIAL TEST POSITIVE
  11. SULFAMETHOXAZOLE [Interacting]
     Active Substance: SULFAMETHOXAZOLE
     Indication: PRODUCT USED FOR UNKNOWN INDICATION
     Dosage: UNK
     Route: 065
  12. CEFUROXIME AXETIL. [Suspect]
     Active Substance: CEFUROXIME AXETIL
     Indication: BACTERIURIA
     Dosage: UNK
     Route: 065
  13. CEFUROXIME. [Interacting]
     Active Substance: CEFUROXIME
     Indication: URINARY TRACT INFECTION
     Dosage: 50 MILLIGRAM, QD
     Route: 048
  14. CEFUROXIME. [Interacting]
     Active Substance: CEFUROXIME
     Indication: BACTERIAL INFECTION
     Dosage: UNK
     Route: 065
  15. PANTOPRAZOLE [Suspect]
     Active Substance: PANTOPRAZOLE
     Indication: GASTROOESOPHAGEAL REFLUX DISEASE
     Dosage: 40 MILLIGRAM, QD
     Route: 048
  16. ITOPRIDE [Interacting]
     Active Substance: ITOPRIDE
     Indication: GASTROOESOPHAGEAL REFLUX DISEASE
     Dosage: 150 MILLIGRAM, QD 50 MG, TID
     Route: 048
  17. ITOPRIDE [Interacting]
     Active Substance: ITOPRIDE
     Indication: BIPOLAR DISORDER
     Dosage: 50 MILLIGRAM, QD
     Route: 048
  18. CIPROFLOXACIN. [Interacting]
     Active Substance: CIPROFLOXACIN
     Indication: ANTIBIOTIC THERAPY
  19. CIPROFLOXACIN. [Interacting]
     Active Substance: CIPROFLOXACIN
     Indication: LEUKOCYTOSIS
  20. CIPROFLOXACIN. [Interacting]
     Active Substance: CIPROFLOXACIN
     Indication: BACTERIURIA
  21. AMOXICILLIN/CLAVULANIC ACID [Interacting]
     Active Substance: AMOXICILLIN\CLAVULANIC ACID
     Indication: URINARY TRACT INFECTION
     Dosage: UNK
     Route: 065
  22. AMOXICILLIN/CLAVULANIC ACID [Interacting]
     Active Substance: AMOXICILLIN\CLAVULANIC ACID
     Indication: BACTERIAL TEST POSITIVE
  23. OLANZAPINE. [Interacting]
     Active Substance: OLANZAPINE
     Indication: BIPOLAR DISORDER
     Dosage: 10 MILLIGRAM, QD
     Route: 048
  24. NIFUROKSAZYD [Interacting]
     Active Substance: NIFUROXAZIDE
     Indication: DIARRHOEA
     Dosage: UNK
     Route: 065
  25. TRIMETHOPRIM SULFAMETHOXAZOLE [Interacting]
     Active Substance: SULFAMETHOXAZOLE\TRIMETHOPRIM
     Indication: ANTIBIOTIC THERAPY
  26. NIFUROXAZIDE [Interacting]
     Active Substance: NIFUROXAZIDE
     Indication: DIARRHOEA
     Dosage: UNK
  27. PANTOPRAZOLE [Suspect]
     Active Substance: PANTOPRAZOLE
     Indication: REFLUX GASTRITIS
     Dosage: 10 MILLIGRAM PER DAY
     Route: 065
  28. AMOXICILLIN/CLAVULANIC ACID [Interacting]
     Active Substance: AMOXICILLIN\CLAVULANIC ACID
     Indication: BACTERIURIA
  29. OLANZAPINE. [Interacting]
     Active Substance: OLANZAPINE
     Dosage: 10 MILLIGRAM, QD
     Route: 048
  30. OLANZAPINE. [Interacting]
     Active Substance: OLANZAPINE
     Dosage: LONG?TERM THERAPY, DAILY 10 MG
  31. OLANZAPINE. [Interacting]
     Active Substance: OLANZAPINE
     Dosage: UNK
     Route: 065
  32. NIFUROKSAZYD [Interacting]
     Active Substance: NIFUROXAZIDE
     Indication: ANTIBIOTIC THERAPY
  33. CIPROFLOXACIN. [Interacting]
     Active Substance: CIPROFLOXACIN
     Indication: URINARY TRACT INFECTION
     Dosage: UNK
     Route: 065
  34. TRIMETHOPRIM SULFAMETHOXAZOLE [Interacting]
     Active Substance: SULFAMETHOXAZOLE\TRIMETHOPRIM
     Indication: URINARY TRACT INFECTION
  35. ARIPIPRAZOLE. [Interacting]
     Active Substance: ARIPIPRAZOLE
     Indication: BIPOLAR DISORDER
     Dosage: 7.5 MILLIGRAM, QD
     Route: 048
  36. NIFUROXAZIDE [Interacting]
     Active Substance: NIFUROXAZIDE
     Indication: ABDOMINAL PAIN
     Dosage: UNK
  37. CEFUROXIME. [Interacting]
     Active Substance: CEFUROXIME
     Indication: ANTIBIOTIC THERAPY
  38. CEFUROXIME. [Interacting]
     Active Substance: CEFUROXIME
     Indication: BACTERIURIA
  39. LEVOFLOXACIN. [Interacting]
     Active Substance: LEVOFLOXACIN
     Indication: BACTERIURIA
  40. CIPROFLOXACINUM [Interacting]
     Active Substance: CIPROFLOXACIN
     Indication: ANTIBIOTIC THERAPY
     Dosage: UNK
     Route: 065
  41. ARIPIPRAZOLE. [Concomitant]
     Active Substance: ARIPIPRAZOLE
     Indication: PRODUCT USED FOR UNKNOWN INDICATION
     Dosage: 7.5 MILLIGRAM
     Route: 065
  42. OLANZAPINE. [Interacting]
     Active Substance: OLANZAPINE
     Dosage: 10 MILLIGRAM, QD
     Route: 065
  43. OLANZAPINE. [Interacting]
     Active Substance: OLANZAPINE
     Dosage: UNK
     Route: 048
  44. ITOPRIDE [Interacting]
     Active Substance: ITOPRIDE
     Indication: REFLUX GASTRITIS
     Dosage: 3 DOSAGE FORM, QD
     Route: 048
  45. TRIMETHOPRIM SULFAMETHOXAZOLE [Interacting]
     Active Substance: SULFAMETHOXAZOLE\TRIMETHOPRIM
     Indication: BACTERIAL INFECTION
     Dosage: UNK
     Route: 065
  46. TRIMETHOPRIM. [Interacting]
     Active Substance: TRIMETHOPRIM
     Indication: PRODUCT USED FOR UNKNOWN INDICATION
     Dosage: UNK
     Route: 065
  47. AMOXICILLIN/CLAVULANIC ACID [Interacting]
     Active Substance: AMOXICILLIN\CLAVULANIC ACID
     Indication: ANTIBIOTIC THERAPY
  48. PANTOPRAZOLE [Interacting]
     Active Substance: PANTOPRAZOLE
     Indication: REFLUX GASTRITIS
     Dosage: 10 MILLIGRAM, QD
     Route: 065
  49. ITOPRIDE [Interacting]
     Active Substance: ITOPRIDE
     Dosage: 50 MILLIGRAM, Q8H
     Route: 065
  50. ITOPRIDE [Interacting]
     Active Substance: ITOPRIDE
     Dosage: 50 MILLIGRAM
     Route: 065
  51. TRIMETHOPRIM SULFAMETHOXAZOLE [Interacting]
     Active Substance: SULFAMETHOXAZOLE\TRIMETHOPRIM
     Indication: BACTERIURIA

REACTIONS (26)
  - Drug ineffective [Unknown]
  - Clostridium difficile infection [Fatal]
  - Inhibitory drug interaction [Not Recovered/Not Resolved]
  - Dyspepsia [Unknown]
  - Bacterial test positive [Fatal]
  - Pseudomembranous colitis [Not Recovered/Not Resolved]
  - Abdominal pain upper [Not Recovered/Not Resolved]
  - Drug interaction [Not Recovered/Not Resolved]
  - Dysbiosis [Not Recovered/Not Resolved]
  - Parosmia [Fatal]
  - White blood cells urine [Unknown]
  - Pyrexia [Not Recovered/Not Resolved]
  - Condition aggravated [Not Recovered/Not Resolved]
  - Trimethylaminuria [Not Recovered/Not Resolved]
  - Breath odour [Unknown]
  - Taste disorder [Not Recovered/Not Resolved]
  - Intestinal perforation [Fatal]
  - Abdominal pain [Fatal]
  - Diarrhoea [Not Recovered/Not Resolved]
  - Gastrooesophageal reflux disease [Unknown]
  - Urine odour abnormal [Not Recovered/Not Resolved]
  - Potentiating drug interaction [Unknown]
  - Peritonitis [Fatal]
  - Megacolon [Fatal]
  - Drug resistance [Unknown]
  - Oral discomfort [Unknown]
